FAERS Safety Report 9371646 (Version 1)
Quarter: 2013Q2

REPORT INFORMATION
  Report Type: Spontaneous
  Country: US (occurrence: US)
  Receive Date: 20130627
  Receipt Date: 20130627
  Transmission Date: 20140414
  Serious: No
  Sender: FDA-Public Use
  Company Number: US-PFIZER INC-2013191039

PATIENT
  Age: 38 Year
  Sex: Male
  Weight: 109 kg

DRUGS (9)
  1. LYRICA [Suspect]
     Indication: INTERVERTEBRAL DISC PROTRUSION
     Dosage: 150 MG, 2X/DAY
     Dates: start: 2011, end: 20130624
  2. LYRICA [Suspect]
     Indication: SPINAL PAIN
  3. LYRICA [Suspect]
     Indication: MUSCULOSKELETAL PAIN
  4. LIPITOR [Concomitant]
     Indication: BLOOD CHOLESTEROL INCREASED
     Dosage: 20 MG, 1X/DAY
  5. LOSARTAN [Concomitant]
     Indication: HYPERTENSION
     Dosage: 50 MG, 1X/DAY
  6. LOSARTAN [Concomitant]
     Indication: CARDIAC DISORDER
  7. ATENOLOL [Concomitant]
     Indication: HYPERTENSION
     Dosage: 25 MG, 1X/DAY
  8. LASIX [Concomitant]
     Dosage: 40 MG, 2X/DAY
  9. TYLENOL [Concomitant]
     Dosage: UNK, AS NEEDED

REACTIONS (1)
  - Pain [Unknown]
